FAERS Safety Report 8916296 (Version 2)
Quarter: 2012Q4

REPORT INFORMATION
  Report Type: 
  Country: FI (occurrence: FI)
  Receive Date: 20121120
  Receipt Date: 20121226
  Transmission Date: 20130627
  Serious: Yes (Death, Other)
  Sender: FDA-Public Use
  Company Number: PHHY2012FI104953

PATIENT
  Sex: Male

DRUGS (4)
  1. FUROSEMIDE [Suspect]
     Route: 064
  2. LABETALOL [Suspect]
     Route: 064
  3. BETAMETHASONE [Suspect]
     Route: 064
  4. PIVMECILLINAM HYDROCHLORIDE [Suspect]

REACTIONS (8)
  - Premature baby [Fatal]
  - Low birth weight baby [Unknown]
  - Foetal growth restriction [Unknown]
  - Apgar score low [Unknown]
  - Blood pH decreased [Unknown]
  - Foetal exposure during pregnancy [Unknown]
  - Caesarean section [None]
  - Maternal drugs affecting foetus [None]
